FAERS Safety Report 5924257-0 (Version None)
Quarter: 2008Q4

REPORT INFORMATION
  Report Type: 
  Country: None (occurrence: None)
  Receive Date: 20081020
  Receipt Date: 20081016
  Transmission Date: 20090506
  Serious: Yes (Life-Threatening, Hospitalization)
  Sender: FDA-Public Use
  Company Number: JP-ASTRAZENECA-2008AP08037

PATIENT
  Age: 84 Year
  Sex: Male

DRUGS (2)
  1. OMEPRAL INJECTION [Suspect]
     Indication: DUODENAL ULCER
     Route: 042
     Dates: start: 20080920, end: 20080924
  2. OMEPRAL TABLETS [Suspect]
     Indication: DUODENAL ULCER
     Route: 048
     Dates: start: 20080925, end: 20080929

REACTIONS (2)
  - INTERSTITIAL LUNG DISEASE [None]
  - TUBULOINTERSTITIAL NEPHRITIS [None]
